FAERS Safety Report 18054863 (Version 1)
Quarter: 2020Q3

REPORT INFORMATION
  Report Type: Spontaneous
  Country: ES (occurrence: ES)
  Receive Date: 20200722
  Receipt Date: 20200722
  Transmission Date: 20201103
  Serious: Yes (Other)
  Sender: FDA-Public Use
  Company Number: NVSC2020ES192199

PATIENT
  Age: 48 Year

DRUGS (7)
  1. OXALIPLATINO [Suspect]
     Active Substance: OXALIPLATIN
     Indication: ADENOCARCINOMA OF COLON
     Dosage: 1 DF, ONCE/SINGLE
     Route: 065
     Dates: start: 20200508
  2. FOLINATO CALCICO [Suspect]
     Active Substance: LEUCOVORIN CALCIUM
     Indication: ADENOCARCINOMA OF COLON
     Dosage: 1 DF, ONCE/SINGLE
     Route: 065
     Dates: start: 20200508
  3. CEFTRIAXONA [Suspect]
     Active Substance: CEFTRIAXONE
     Indication: INTESTINAL PERFORATION
     Dosage: UNK (100 VIALES + 100 AMPOLLAS DE DISOLVENTE)
     Route: 065
     Dates: start: 20200516, end: 20200518
  4. TEICOPLANINA [Suspect]
     Active Substance: TEICOPLANIN
     Indication: INTESTINAL PERFORATION
     Dosage: UNK
     Route: 065
     Dates: start: 20200521
  5. PIPERACILLIN SODIUM,TAZOBACTAM SODIUM [Suspect]
     Active Substance: PIPERACILLIN SODIUM\TAZOBACTAM SODIUM
     Indication: INTESTINAL PERFORATION
     Dosage: UNK
     Route: 065
     Dates: start: 20200518, end: 20200521
  6. MEROPENEM HOSPIRA [Suspect]
     Active Substance: MEROPENEM
     Indication: INTESTINAL PERFORATION
     Dosage: UNK
     Route: 065
     Dates: start: 20200521
  7. FLUOROURACIL. [Suspect]
     Active Substance: FLUOROURACIL
     Indication: INTESTINAL PERFORATION
     Dosage: 1 DF, ONCE/SINGLE
     Route: 065
     Dates: start: 20200508

REACTIONS (1)
  - Toxic skin eruption [Unknown]

NARRATIVE: CASE EVENT DATE: 202005
